FAERS Safety Report 21190271 (Version 4)
Quarter: 2022Q3

REPORT INFORMATION
  Report Type: Report from Study
  Country: US (occurrence: US)
  Receive Date: 20220809
  Receipt Date: 20220930
  Transmission Date: 20221027
  Serious: No
  Sender: FDA-Public Use
  Company Number: US-BIOVITRUM-2022US07319

PATIENT
  Age: 57 Year
  Sex: Male

DRUGS (2)
  1. KINERET [Suspect]
     Active Substance: ANAKINRA
     Indication: Meniere^s disease
     Dates: start: 20220603
  2. KINERET [Suspect]
     Active Substance: ANAKINRA
     Indication: Deafness
     Dates: start: 202205

REACTIONS (11)
  - Tinnitus [Recovering/Resolving]
  - Hearing disability [Recovering/Resolving]
  - Anxiety [Unknown]
  - Upper respiratory tract infection [Recovered/Resolved]
  - Dizziness [Unknown]
  - Nausea [Unknown]
  - Cough [Unknown]
  - Vertigo [Unknown]
  - Sleep disorder [Unknown]
  - Drug ineffective [Unknown]
  - Off label use [Unknown]

NARRATIVE: CASE EVENT DATE: 20220603
